FAERS Safety Report 11501317 (Version 1)
Quarter: 2015Q3

REPORT INFORMATION
  Report Type: Spontaneous
  Country: FR (occurrence: FR)
  Receive Date: 20150914
  Receipt Date: 20150914
  Transmission Date: 20151125
  Serious: Yes (Hospitalization)
  Sender: FDA-Public Use
  Company Number: FR-B. BRAUN MEDICAL INC.-1041893

PATIENT
  Age: 23 Month
  Sex: Male

DRUGS (8)
  1. COLIMYCINE [Concomitant]
     Active Substance: COLISTIMETHATE SODIUM
  2. ESOMEPRAZOLE [Concomitant]
     Active Substance: ESOMEPRAZOLE
  3. NUTRILIPID I.V. FAT EMULSION [Suspect]
     Active Substance: SOYBEAN OIL
     Route: 051
  4. PEDIAVEN AP-HP [Concomitant]
     Active Substance: AMINO ACIDS\DEXTROSE\ELECTROLYTES NOS
  5. CERNEVIT [Concomitant]
     Active Substance: VITAMINS
  6. AUGMENTIN [Concomitant]
     Active Substance: AMOXICILLIN\CLAVULANATE POTASSIUM
  7. PARACETAMOL [Concomitant]
     Active Substance: ACETAMINOPHEN
  8. GLUCIDION [Concomitant]
     Active Substance: GLUCOSE, LIQUID\POTASSIUM CHLORIDE\SODIUM CHLORIDE

REACTIONS (4)
  - Hypertriglyceridaemia [None]
  - Medication error [None]
  - Accidental overdose [Recovered/Resolved]
  - Tachypnoea [None]

NARRATIVE: CASE EVENT DATE: 20150807
